FAERS Safety Report 4268890-3 (Version None)
Quarter: 2004Q1

REPORT INFORMATION
  Report Type: 
  Country: None (occurrence: None)
  Receive Date: 20040109
  Receipt Date: 20031215
  Transmission Date: 20041129
  Serious: Yes (Other)
  Sender: FDA-Public Use
  Company Number: SP00122 (0)

PATIENT
  Age: 53 Year
  Sex: Female

DRUGS (2)
  1. COLAZAL [Suspect]
     Indication: COLITIS ULCERATIVE
     Dosage: 750 MG, ORAL
     Route: 048
     Dates: start: 20030815, end: 20030827
  2. PRED-CLYSMA (PREDNISOLONE PHOSPHATE) [Concomitant]

REACTIONS (2)
  - HAEMATOMA [None]
  - THROMBOPHLEBITIS [None]
